FAERS Safety Report 6048372-9 (Version None)
Quarter: 2009Q1

REPORT INFORMATION
  Report Type: 
  Country: None (occurrence: None)
  Receive Date: 20090123
  Receipt Date: 20090114
  Transmission Date: 20090719
  Serious: Yes (Death, Hospitalization)
  Sender: FDA-Public Use
  Company Number: US-BAXTER-2009BH000828

PATIENT
  Age: 56 Year
  Sex: Female

DRUGS (2)
  1. DIANEAL [Suspect]
     Indication: PERITONEAL DIALYSIS
     Route: 033
     Dates: start: 20081018, end: 20090104
  2. DIANEAL [Suspect]
     Indication: PERITONEAL DIALYSIS
     Route: 033
     Dates: start: 20081018, end: 20090104

REACTIONS (5)
  - ABDOMINAL PAIN [None]
  - CARDIAC ARREST [None]
  - CORONARY ARTERY DISEASE [None]
  - DIABETES MELLITUS [None]
  - NAUSEA [None]
